FAERS Safety Report 8111685-0 (Version None)
Quarter: 2011Q4

REPORT INFORMATION
  Report Type: 
  Country: None (occurrence: None)
  Receive Date: 20111223
  Receipt Date: 20101102
  Transmission Date: 20120403
  Serious: Yes (Other)
  Sender: FDA-Public Use
  Company Number: PHHY2010US75087

PATIENT
  Age: 20 Year
  Sex: Female

DRUGS (1)
  1. CLOZARIL [Suspect]
     Dosage: 5 MG , QD 10 MG, QD
     Route: 048
     Dates: start: 20050101

REACTIONS (2)
  - ANXIETY [None]
  - OBSESSIVE THOUGHTS [None]
